FAERS Safety Report 21742419 (Version 2)
Quarter: 2022Q4

REPORT INFORMATION
  Report Type: Report from Study
  Country: JP (occurrence: JP)
  Receive Date: 20221216
  Receipt Date: 20221229
  Transmission Date: 20230112
  Serious: Yes (Life-Threatening, Hospitalization, Other)
  Sender: FDA-Public Use
  Company Number: JP-BIOMARINAP-JP-2022-147464

PATIENT

DRUGS (16)
  1. BRINEURA [Suspect]
     Active Substance: CERLIPONASE ALFA
     Indication: Neuronal ceroid lipofuscinosis
     Dosage: 300 MILLIGRAM, QOW
     Route: 020
     Dates: start: 20220623, end: 20220623
  2. CLOBAZAM [Concomitant]
     Active Substance: CLOBAZAM
     Indication: Epilepsy
     Dosage: ~~~
     Dates: start: 2007
  3. LEVETIRACETAM [Concomitant]
     Active Substance: LEVETIRACETAM
     Indication: Epilepsy
     Dosage: ~~~
     Dates: start: 2011
  4. GABAPENTIN [Concomitant]
     Active Substance: GABAPENTIN
     Indication: Epilepsy
     Dosage: ~~~
     Dates: start: 2008
  5. RAMELTEON [Concomitant]
     Active Substance: RAMELTEON
     Indication: Insomnia
     Dosage: ~~~
     Dates: start: 2013
  6. BIFIDOBACTERIUM LONGUM [Concomitant]
     Active Substance: BIFIDOBACTERIUM LONGUM
     Indication: Chronic gastritis
     Dosage: ~~~
     Dates: start: 2009
  7. PERAMPANEL [Concomitant]
     Active Substance: PERAMPANEL
     Indication: Epilepsy
     Dosage: ~~~
     Dates: start: 2020
  8. NITRAZEPAM [Concomitant]
     Active Substance: NITRAZEPAM
     Indication: Insomnia
     Dosage: ~~~
     Dates: start: 2007
  9. PIRACETAM [Concomitant]
     Active Substance: PIRACETAM
     Indication: Epilepsy
     Dosage: ~~~
     Dates: start: 2017
  10. CLOSTRIDIUM BUTYRICUM SPORES STRAIN M-55 [Concomitant]
     Active Substance: CLOSTRIDIUM BUTYRICUM SPORES STRAIN M-55
     Indication: Chronic gastritis
     Dosage: ~~~
     Dates: start: 2018
  11. POTASSIUM CHLORIDE [Concomitant]
     Active Substance: POTASSIUM CHLORIDE
     Indication: Hypokalaemia
     Dosage: ~~~
     Dates: start: 2021
  12. ALFACALCIDOL [Concomitant]
     Active Substance: ALFACALCIDOL
     Indication: Osteoporosis
     Dosage: ~~~
     Dates: start: 2013
  13. MOSAPRIDE CITRATE [Concomitant]
     Active Substance: MOSAPRIDE CITRATE
     Indication: Chronic gastritis
     Dosage: ~~~
     Dates: start: 2008
  14. DIAZEPAM [Concomitant]
     Active Substance: DIAZEPAM
     Indication: Epilepsy
     Dosage: ~~~
     Dates: start: 2009
  15. DANTROLENE [Concomitant]
     Active Substance: DANTROLENE
     Indication: Cerebral palsy
     Dosage: ~~~
     Dates: start: 2009
  16. TOCOPHEROL ACETATE TOWA [Concomitant]
     Indication: Cardiovascular disorder
     Dosage: ~~~
     Dates: start: 2009

REACTIONS (1)
  - Stoma site hypergranulation [Recovered/Resolved]

NARRATIVE: CASE EVENT DATE: 20220701
